FAERS Safety Report 9988582 (Version 5)
Quarter: 2014Q2

REPORT INFORMATION
  Report Type: Spontaneous
  Country: JP (occurrence: JP)
  Receive Date: 20140310
  Receipt Date: 20140502
  Transmission Date: 20141212
  Serious: Yes (Disabling, Congenital Anomaly)
  Sender: FDA-Public Use
  Company Number: JP-ROCHE-1347002

PATIENT
  Age: 0 Day
  Sex: Female
  Weight: 2.06 kg

DRUGS (1)
  1. CELLCEPT [Suspect]
     Indication: PRODUCT USED FOR UNKNOWN INDICATION
     Route: 064

REACTIONS (7)
  - Microtia [Recovered/Resolved with Sequelae]
  - External auditory canal atresia [Recovered/Resolved with Sequelae]
  - Low set ears [Unknown]
  - Congenital genital malformation female [Unknown]
  - Anomaly of external ear congenital [Unknown]
  - Congenital anomaly of inner ear [Unknown]
  - Foetal exposure during pregnancy [Unknown]
